FAERS Safety Report 23215910 (Version 2)
Quarter: 2023Q4

REPORT INFORMATION
  Report Type: Spontaneous
  Country: US (occurrence: US)
  Receive Date: 20231122
  Receipt Date: 20231211
  Transmission Date: 20240110
  Serious: No
  Sender: FDA-Public Use
  Company Number: US-SA-SAC20231115000235

PATIENT
  Age: 58 Year
  Sex: Female
  Weight: 89.9 kg

DRUGS (6)
  1. DUPIXENT [Suspect]
     Active Substance: DUPILUMAB
     Indication: Dermatitis atopic
     Dosage: 300 MG, QOW
     Route: 058
     Dates: start: 20231019
  2. IRON [Concomitant]
     Active Substance: IRON
  3. CALCIUM [Concomitant]
     Active Substance: CALCIUM
  4. SOLIRIS [Concomitant]
     Active Substance: ECULIZUMAB
  5. BELBUCA [Concomitant]
     Active Substance: BUPRENORPHINE HYDROCHLORIDE
  6. AMITIZA [Concomitant]
     Active Substance: LUBIPROSTONE

REACTIONS (16)
  - Infection [Unknown]
  - Liver function test abnormal [Unknown]
  - Renal function test abnormal [Unknown]
  - Sleep disorder [Not Recovered/Not Resolved]
  - Skin haemorrhage [Not Recovered/Not Resolved]
  - Skin weeping [Not Recovered/Not Resolved]
  - Dry skin [Not Recovered/Not Resolved]
  - Skin fissures [Not Recovered/Not Resolved]
  - Mouth ulceration [Unknown]
  - Hepatic enzyme increased [Unknown]
  - Restless legs syndrome [Unknown]
  - Pain [Unknown]
  - Discomfort [Unknown]
  - Condition aggravated [Unknown]
  - Skin exfoliation [Not Recovered/Not Resolved]
  - Rash [Unknown]

NARRATIVE: CASE EVENT DATE: 20230101
